FAERS Safety Report 16837788 (Version 1)
Quarter: 2019Q3

REPORT INFORMATION
  Report Type: Spontaneous
  Country: RO (occurrence: RO)
  Receive Date: 20190923
  Receipt Date: 20190923
  Transmission Date: 20191005
  Serious: Yes (Disabling)
  Sender: FDA-Public Use
  Company Number: RO-AMGEN-ROUNI2019029953

PATIENT
  Age: 58 Year
  Sex: Female
  Weight: 63 kg

DRUGS (4)
  1. TRASTUZUMAB;VORHYALURONIDASE ALFA [Suspect]
     Active Substance: HYALURONIDASE (HUMAN RECOMBINANT)\TRASTUZUMAB
     Indication: BREAST CANCER METASTATIC
  2. TRASTUZUMAB. [Suspect]
     Active Substance: TRASTUZUMAB
     Indication: BREAST CANCER METASTATIC
     Dosage: UNK
     Route: 065
  3. TRASTUZUMAB;VORHYALURONIDASE ALFA [Suspect]
     Active Substance: HYALURONIDASE (HUMAN RECOMBINANT)\TRASTUZUMAB
     Indication: METASTASES TO BONE
     Dosage: 600 MILLIGRAM, 600MG/5ML , Q3WK
     Route: 058
     Dates: start: 20160101
  4. TRASTUZUMAB;VORHYALURONIDASE ALFA [Suspect]
     Active Substance: HYALURONIDASE (HUMAN RECOMBINANT)\TRASTUZUMAB
     Indication: BREAST CANCER STAGE IV

REACTIONS (16)
  - Alopecia [Unknown]
  - Mouth swelling [Not Recovered/Not Resolved]
  - Asthenia [Unknown]
  - Bone pain [Unknown]
  - Headache [Unknown]
  - Vomiting [Unknown]
  - Skin exfoliation [Recovered/Resolved]
  - Eye disorder [Not Recovered/Not Resolved]
  - Nasopharyngitis [Not Recovered/Not Resolved]
  - Pruritus [Recovered/Resolved]
  - Pain in extremity [Not Recovered/Not Resolved]
  - Pain [Unknown]
  - Amnesia [Not Recovered/Not Resolved]
  - Confusional state [Unknown]
  - Rash [Recovered/Resolved]
  - Fatigue [Not Recovered/Not Resolved]
